FAERS Safety Report 5524335-4 (Version None)
Quarter: 2007Q4

REPORT INFORMATION
  Report Type: 
  Country: None (occurrence: None)
  Receive Date: 20071121
  Receipt Date: 20071113
  Transmission Date: 20080405
  Serious: Yes (Other)
  Sender: FDA-Public Use
  Company Number: US-PFIZER INC-2007095690

PATIENT
  Sex: Male

DRUGS (2)
  1. NEURONTIN [Suspect]
  2. AMBIEN [Interacting]

REACTIONS (2)
  - CARDIAC FLUTTER [None]
  - DRUG INTERACTION [None]
